FAERS Safety Report 10084781 (Version 1)
Quarter: 2014Q2

REPORT INFORMATION
  Report Type: Spontaneous
  Country: DE (occurrence: DE)
  Receive Date: 20140417
  Receipt Date: 20140417
  Transmission Date: 20141212
  Serious: Yes (Other)
  Sender: FDA-Public Use
  Company Number: PHHY2013DE123075

PATIENT
  Age: 52 Year
  Sex: Female

DRUGS (1)
  1. SOM230 [Suspect]
     Dosage: 1200 UG, PER DAY
     Route: 058

REACTIONS (7)
  - Adrenocortical insufficiency acute [Unknown]
  - Asthenia [Unknown]
  - Fatigue [Unknown]
  - Headache [Unknown]
  - Nausea [Unknown]
  - Blood cortisol decreased [Unknown]
  - Cortisol free urine decreased [Unknown]
